FAERS Safety Report 14517760 (Version 2)
Quarter: 2018Q1

REPORT INFORMATION
  Report Type: Spontaneous
  Country: US (occurrence: US)
  Receive Date: 20180212
  Receipt Date: 20180319
  Transmission Date: 20180509
  Serious: No
  Sender: FDA-Public Use
  Company Number: US-TORRENT-00003498

PATIENT
  Age: 38 Year
  Sex: Female

DRUGS (1)
  1. LAMOTRIGINE. [Suspect]
     Active Substance: LAMOTRIGINE
     Indication: DEPRESSION
     Dosage: WHITE, ROUND TABLETS WITH PILL IMPRINT 1048. 1.5 TABLETS PER DAY
     Dates: start: 2015

REACTIONS (1)
  - Drug ineffective [Unknown]
